FAERS Safety Report 22399931 (Version 1)
Quarter: 2023Q2

REPORT INFORMATION
  Report Type: Spontaneous
  Country: US (occurrence: US)
  Receive Date: 20230602
  Receipt Date: 20230602
  Transmission Date: 20230722
  Serious: Yes (Death, Hospitalization)
  Sender: FDA-Public Use
  Company Number: US-drreddys-LIT/USA/23/0166183

PATIENT
  Age: 23 Month
  Sex: Female

DRUGS (5)
  1. ISOTRETINOIN [Suspect]
     Active Substance: ISOTRETINOIN
     Indication: Neuroblastoma
  2. DEXAMETHASONE [Suspect]
     Active Substance: DEXAMETHASONE
     Indication: COVID-19
  3. DINUTUXIMAB [Suspect]
     Active Substance: DINUTUXIMAB
     Indication: Neuroblastoma
  4. ANAKINRA [Suspect]
     Active Substance: ANAKINRA
     Indication: COVID-19
  5. REMDESIVIR [Suspect]
     Active Substance: REMDESIVIR
     Indication: COVID-19

REACTIONS (8)
  - Death [Fatal]
  - Shock [Unknown]
  - Respiratory failure [Unknown]
  - Multisystem inflammatory syndrome [Unknown]
  - COVID-19 [Unknown]
  - Pneumothorax [Unknown]
  - Product use in unapproved indication [Unknown]
  - Product use issue [Unknown]
